FAERS Safety Report 4689413-0 (Version None)
Quarter: 2005Q2

REPORT INFORMATION
  Report Type: 
  Country: None (occurrence: None)
  Receive Date: 20050608
  Receipt Date: 20050415
  Transmission Date: 20051028
  Serious: No
  Sender: FDA-Public Use
  Company Number: 2005-BP-06220BP

PATIENT
  Age: 78 Year
  Sex: Male

DRUGS (7)
  1. SPIRIVA [Suspect]
     Indication: CHRONIC OBSTRUCTIVE PULMONARY DISEASE
     Dosage: 18 MCG (18 MCG), IH
     Route: 055
     Dates: start: 20040601, end: 20040901
  2. COLACE (DOCUSATE SODIUM) [Suspect]
     Indication: CONSTIPATION
     Dosage: PO
     Route: 048
     Dates: start: 20050401
  3. PULMACORT [Concomitant]
  4. DUONEB (COMBIVENT /GFR/) [Concomitant]
  5. FORADIL [Concomitant]
  6. NORVASC [Concomitant]
  7. METOPROPOL [Concomitant]

REACTIONS (3)
  - ASTHENIA [None]
  - CONSTIPATION [None]
  - MALAISE [None]
